FAERS Safety Report 19382640 (Version 1)
Quarter: 2021Q2

REPORT INFORMATION
  Report Type: Spontaneous
  Country: JP (occurrence: JP)
  Receive Date: 20210607
  Receipt Date: 20210607
  Transmission Date: 20210717
  Serious: Yes (Hospitalization)
  Sender: FDA-Public Use
  Company Number: JP-DSJP-DSJ-2021-116679

PATIENT
  Age: 7 Decade
  Sex: Male
  Weight: 65 kg

DRUGS (7)
  1. HEPARIN [Suspect]
     Active Substance: HEPARIN SODIUM
     Dosage: 7000 IU
     Route: 042
  2. HEPARIN [Suspect]
     Active Substance: HEPARIN SODIUM
     Dosage: 10000?15000IU/DAY
     Route: 042
  3. HEPARIN [Suspect]
     Active Substance: HEPARIN SODIUM
     Dosage: 9000 IU
     Route: 042
  4. HEPARIN [Suspect]
     Active Substance: HEPARIN SODIUM
     Indication: ACUTE MYOCARDIAL INFARCTION
     Dosage: 2000 IU
     Route: 042
  5. HEPARIN [Suspect]
     Active Substance: HEPARIN SODIUM
     Dosage: 2000 IU
     Route: 042
  6. BAYASPIRIN [Concomitant]
     Active Substance: ASPIRIN
     Indication: ACUTE MYOCARDIAL INFARCTION
     Dosage: UNK
     Route: 065
  7. EFIENT [Suspect]
     Active Substance: PRASUGREL HYDROCHLORIDE
     Indication: ACUTE MYOCARDIAL INFARCTION
     Dosage: UNK
     Route: 065

REACTIONS (2)
  - Heparin-induced thrombocytopenia [Recovered/Resolved]
  - Vascular stent thrombosis [Recovered/Resolved]
